FAERS Safety Report 9498419 (Version 1)
Quarter: 2013Q3

REPORT INFORMATION
  Report Type: Spontaneous
  Country: US (occurrence: US)
  Receive Date: 20130904
  Receipt Date: 20130904
  Transmission Date: 20140515
  Serious: Yes (Other)
  Sender: FDA-Public Use
  Company Number: US-GLAXOSMITHKLINE-A1039606A

PATIENT
  Age: 21 Year
  Sex: Male

DRUGS (3)
  1. POTIGA [Suspect]
     Indication: LENNOX-GASTAUT SYNDROME
     Route: 065
  2. VIMPAT [Suspect]
     Indication: LENNOX-GASTAUT SYNDROME
     Route: 065
  3. DEPAKOTE [Suspect]
     Indication: LENNOX-GASTAUT SYNDROME
     Route: 065

REACTIONS (1)
  - Convulsion [Unknown]
